FAERS Safety Report 7505254-0 (Version None)
Quarter: 2011Q2

REPORT INFORMATION
  Report Type: 
  Country: None (occurrence: None)
  Receive Date: 20110526
  Receipt Date: 20110522
  Transmission Date: 20111010
  Serious: No
  Sender: FDA-Public Use
  Company Number: US-PFIZER INC-2011111951

PATIENT
  Sex: Female

DRUGS (5)
  1. CHANTIX [Suspect]
     Indication: SMOKING CESSATION THERAPY
     Dosage: 0.5 MG, DAILY
     Route: 048
     Dates: start: 20110503, end: 20110501
  2. MELATONIN [Concomitant]
     Indication: MIGRAINE
     Dosage: UNK, AS NEEDED
     Route: 048
  3. LISINOPRIL [Concomitant]
     Indication: HYPERTENSION
     Dosage: 10 MG, DAILY
     Route: 048
  4. CHANTIX [Suspect]
     Dosage: 1 MG, 2X/DAY
     Dates: start: 20110501
  5. VICODIN [Concomitant]
     Indication: MIGRAINE
     Dosage: [HYDROCODONE BITARTRATE 5 MG]/[ACETAMINOPHEN 500 MG], AS NEEDED
     Route: 048

REACTIONS (1)
  - MIGRAINE [None]
